FAERS Safety Report 18095266 (Version 1)
Quarter: 2020Q3

REPORT INFORMATION
  Report Type: Report from Study
  Country: US (occurrence: US)
  Receive Date: 20200730
  Receipt Date: 20200730
  Transmission Date: 20201103
  Serious: Yes (Other)
  Sender: FDA-Public Use
  Company Number: US-MYLANLABS-2020M1068120

PATIENT
  Age: 12 Year
  Sex: Male

DRUGS (1)
  1. ISOTRETINOIN. [Suspect]
     Active Substance: ISOTRETINOIN
     Indication: NEUROBLASTOMA
     Dosage: 160 MILLIGRAM/SQ. METER, QD, FOR 2 WEEKS A MONTH, SCHEDULED TO BE ADMINISTERED FOR 6 MONTHS
     Route: 065

REACTIONS (3)
  - Off label use [Unknown]
  - Epiphyseal injury [Recovering/Resolving]
  - Growth failure [Recovering/Resolving]
